FAERS Safety Report 9686724 (Version 1)
Quarter: 2013Q4

REPORT INFORMATION
  Report Type: Spontaneous
  Country: US (occurrence: US)
  Receive Date: 20131113
  Receipt Date: 20131113
  Transmission Date: 20140711
  Serious: No
  Sender: FDA-Public Use
  Company Number: US-PFIZER INC-2013324074

PATIENT
  Age: 32 Year
  Sex: Female
  Weight: 74.83 kg

DRUGS (3)
  1. RELPAX [Suspect]
     Indication: POST-TRAUMATIC HEADACHE
     Dosage: 40 MG, AS NEEDED
     Route: 048
     Dates: start: 201308, end: 20131027
  2. CHLORZOXAZONE [Concomitant]
     Indication: MUSCLE RELAXANT THERAPY
     Dosage: UNK
  3. GABAPENTIN [Concomitant]
     Dosage: UNK

REACTIONS (2)
  - Blepharospasm [Not Recovered/Not Resolved]
  - Sensory disturbance [Not Recovered/Not Resolved]
